FAERS Safety Report 6931087-X (Version None)
Quarter: 2010Q3

REPORT INFORMATION
  Report Type: 
  Country: None (occurrence: None)
  Receive Date: 20100817
  Receipt Date: 20100817
  Transmission Date: 20110219
  Serious: Yes (Other)
  Sender: FDA-Public Use
  Company Number: None

PATIENT
  Sex: Male
  Weight: 83.9154 kg

DRUGS (2)
  1. PAROXETINE HCL [Suspect]
     Indication: ANXIETY
     Dosage: 30 MG ONCE DAILY PO
     Route: 048
     Dates: start: 19950101, end: 20100816
  2. PAROXETINE HCL [Suspect]
     Indication: DEPRESSION
     Dosage: 30 MG ONCE DAILY PO
     Route: 048
     Dates: start: 19950101, end: 20100816

REACTIONS (7)
  - AGITATION [None]
  - ANGER [None]
  - DEPRESSION [None]
  - DIZZINESS [None]
  - HEADACHE [None]
  - PHOTOPHOBIA [None]
  - SUICIDAL IDEATION [None]
